FAERS Safety Report 8068104-2 (Version None)
Quarter: 2012Q1

REPORT INFORMATION
  Report Type: 
  Country: None (occurrence: None)
  Receive Date: 20120124
  Receipt Date: 20110920
  Transmission Date: 20120608
  Serious: No
  Sender: FDA-Public Use
  Company Number: US-AMGEN-USASP2011048397

PATIENT
  Age: 70 Year
  Sex: Female

DRUGS (1)
  1. PROLIA [Suspect]
     Indication: OSTEOPOROSIS POSTMENOPAUSAL
     Dosage: UNK
     Dates: start: 20110301, end: 20110301

REACTIONS (5)
  - TOOTH INFECTION [None]
  - PAIN IN JAW [None]
  - CYSTITIS [None]
  - MUSCULOSKELETAL PAIN [None]
  - ARTHRALGIA [None]
